FAERS Safety Report 8359747-7 (Version None)
Quarter: 2012Q2

REPORT INFORMATION
  Report Type: 
  Country: None (occurrence: None)
  Receive Date: 20120515
  Receipt Date: 20120507
  Transmission Date: 20120825
  Serious: Yes (Other)
  Sender: FDA-Public Use
  Company Number: DE-UCBSA-056199

PATIENT
  Sex: Female
  Weight: 103.5 kg

DRUGS (8)
  1. METHOTREXATE SODIUM [Suspect]
     Indication: RHEUMATOID ARTHRITIS
     Dosage: ONCE IN A WEEK??
     Route: 058
     Dates: start: 20050101
  2. BISOPROLOL FUMARATE [Concomitant]
     Indication: HYPERTENSION
     Route: 048
     Dates: start: 20050101
  3. CIMZIA [Suspect]
     Indication: RHEUMATOID ARTHRITIS
     Route: 058
     Dates: start: 20030601
  4. ATACAND 16 PLUS [Concomitant]
     Indication: HYPERTENSION
     Route: 048
     Dates: start: 20050101
  5. DREISAFOL [Concomitant]
     Indication: PROPHYLAXIS
     Route: 048
     Dates: start: 20050101
  6. DEKRISTOL [Concomitant]
     Indication: PROPHYLAXIS
     Dosage: DAILY DOSE: 20000 IE 2 TABLETS
     Route: 048
     Dates: start: 20090101
  7. DEKRISTOL [Concomitant]
     Indication: VITAMIN B COMPLEX DEFICIENCY
     Dosage: DAILY DOSE: 20000 IE 2 TABLETS
     Route: 048
     Dates: start: 20090101
  8. DEKRISTOL [Concomitant]
     Indication: OSTEOPOROSIS
     Dosage: DAILY DOSE: 20000 IE 2 TABLETS
     Route: 048
     Dates: start: 20090101

REACTIONS (5)
  - APHASIA [None]
  - DIZZINESS [None]
  - VASCULAR ENCEPHALOPATHY [None]
  - MEMORY IMPAIRMENT [None]
  - FATIGUE [None]
